FAERS Safety Report 5847740-5 (Version None)
Quarter: 2008Q3

REPORT INFORMATION
  Report Type: 
  Country: None (occurrence: None)
  Receive Date: 20080814
  Receipt Date: 20080814
  Transmission Date: 20090109
  Serious: Yes (Life-Threatening)
  Sender: FDA-Public Use
  Company Number: None

PATIENT
  Sex: Female
  Weight: 79.8331 kg

DRUGS (17)
  1. REMICADE [Suspect]
     Indication: CROHN'S DISEASE
     Dosage: 500MG Q 4WKS IV
     Route: 042
  2. REMICADE [Suspect]
     Dosage: 400 MG
     Dates: start: 20030116
  3. REMICADE [Suspect]
     Dosage: 400 MG
     Dates: start: 20030205
  4. REMICADE [Suspect]
     Dosage: 400 MG
     Dates: start: 20030305
  5. REMICADE [Suspect]
     Dosage: 400 MG
     Dates: start: 20030522
  6. REMICADE [Suspect]
     Dosage: 400 MG
     Dates: start: 20030722
  7. REMICADE [Suspect]
     Dosage: 400 MG
     Dates: start: 20031007
  8. REMICADE [Suspect]
     Dosage: 400 MG
     Dates: start: 20031202
  9. REMICADE [Suspect]
     Dosage: 400 MG
     Dates: start: 20040202
  10. REMICADE [Suspect]
     Dosage: 400 MG
     Dates: start: 20040330
  11. REMICADE [Suspect]
     Dosage: 400 MG
     Dates: start: 20040526
  12. REMICADE [Suspect]
     Dosage: 400 MG
     Dates: start: 20040726
  13. REMICADE [Suspect]
     Dosage: 400 MG
     Dates: start: 20071119
  14. REMICADE [Suspect]
     Dosage: 400 MG
     Dates: start: 20071203
  15. REMICADE [Suspect]
     Dosage: 400 MG
     Dates: start: 20080104
  16. REMICADE [Suspect]
     Dosage: 400 MG
     Dates: start: 20080228
  17. REMICADE [Suspect]
     Dosage: 400 MG
     Dates: start: 20080328

REACTIONS (1)
  - BREAST CANCER [None]
